FAERS Safety Report 20381739 (Version 1)
Quarter: 2022Q1

REPORT INFORMATION
  Report Type: Spontaneous
  Country: US (occurrence: None)
  Receive Date: 20220126
  Receipt Date: 20220126
  Transmission Date: 20220424
  Serious: Yes (Hospitalization)
  Sender: FDA-Public Use
  Company Number: None

PATIENT
  Age: 83 Year
  Sex: Male
  Weight: 90.2 kg

DRUGS (1)
  1. REVLIMID [Suspect]
     Active Substance: LENALIDOMIDE
     Indication: Plasma cell myeloma
     Dosage: OTHER FREQUENCY : MWF X21 DAYS OFF 7;?
     Route: 048
     Dates: start: 20211014

REACTIONS (6)
  - Dyspnoea [None]
  - Pleural effusion [None]
  - Neoplasm malignant [None]
  - Cardiac failure [None]
  - Hypersensitivity [None]
  - Pneumonitis [None]

NARRATIVE: CASE EVENT DATE: 20220110
